FAERS Safety Report 4450433-2 (Version None)
Quarter: 2004Q3

REPORT INFORMATION
  Report Type: 
  Country: None (occurrence: None)
  Receive Date: 20040914
  Receipt Date: 20040806
  Transmission Date: 20050211
  Serious: Yes (Hospitalization, Disabling)
  Sender: FDA-Public Use
  Company Number: A01200403813

PATIENT
  Age: 81 Year
  Sex: Female

DRUGS (9)
  1. KAYEXALATE [Suspect]
     Indication: HYPERKALAEMIA
     Dosage: 45 GR, ORAL
     Route: 048
     Dates: start: 20040601, end: 20040702
  2. DIOVAN [Concomitant]
  3. LIPOVAS (SIMVASTATIN) [Concomitant]
  4. TANATRIL (IMIDAPRIL HYDROCHLORIDE) [Concomitant]
  5. LASIX [Concomitant]
  6. LANDEL (EFONIDIPINE HYDROCHLORIDE) [Concomitant]
  7. SENNOSIDE (SENNA) [Concomitant]
  8. LAC-B (LACTOBACILLUS BIFIDUS, LYOPHILIZED) [Concomitant]
  9. MAGNESIUM OXIDE [Concomitant]

REACTIONS (6)
  - BLOOD UREA INCREASED [None]
  - CONSTIPATION [None]
  - FAECALOMA [None]
  - INCISION SITE ABSCESS [None]
  - PERITONITIS [None]
  - RECTAL PERFORATION [None]
